FAERS Safety Report 10184967 (Version 1)
Quarter: 2014Q2

REPORT INFORMATION
  Report Type: Spontaneous
  Country: US (occurrence: None)
  Receive Date: 20140519
  Receipt Date: 20140519
  Transmission Date: 20141212
  Serious: Yes (Hospitalization, Other)
  Sender: FDA-Public Use
  Company Number: ADR-2014-00829

PATIENT
  Age: 15 Year
  Sex: Male

DRUGS (1)
  1. LIORESAL INTRATHECAL [Suspect]
     Indication: MUSCLE SPASTICITY

REACTIONS (9)
  - Inappropriate schedule of drug administration [None]
  - Drug dose omission [None]
  - Rash [None]
  - Rash [None]
  - Rash [None]
  - Restlessness [None]
  - Aphasia [None]
  - Erythema [None]
  - Drug withdrawal syndrome [None]
